FAERS Safety Report 24829294 (Version 1)
Quarter: 2025Q1

REPORT INFORMATION
  Report Type: Other
  Country: ES (occurrence: ES)
  Receive Date: 20250110
  Receipt Date: 20250110
  Transmission Date: 20250409
  Serious: Yes (Hospitalization, Other)
  Sender: ANI
  Company Number: ES-ANIPHARMA-015342

PATIENT
  Age: 73 Year
  Sex: Female

DRUGS (9)
  1. LEUCOVORIN CALCIUM [Suspect]
     Active Substance: LEUCOVORIN CALCIUM
     Indication: Colorectal cancer stage IV
  2. OXALIPLATIN [Concomitant]
     Active Substance: OXALIPLATIN
     Indication: Colorectal cancer stage IV
  3. FLUOROURACIL [Concomitant]
     Active Substance: FLUOROURACIL
     Indication: Colorectal cancer stage IV
  4. BEVACIZUMAB [Concomitant]
     Active Substance: BEVACIZUMAB
     Indication: Colorectal cancer stage IV
  5. LEVETIRACETAM [Concomitant]
     Active Substance: LEVETIRACETAM
     Indication: Generalised tonic-clonic seizure
  6. LEUCOVORIN CALCIUM [Suspect]
     Active Substance: LEUCOVORIN CALCIUM
     Indication: Metastases to liver
  7. OXALIPLATIN [Concomitant]
     Active Substance: OXALIPLATIN
     Indication: Metastases to liver
  8. FLUOROURACIL [Concomitant]
     Active Substance: FLUOROURACIL
     Indication: Metastases to liver
  9. BEVACIZUMAB [Concomitant]
     Active Substance: BEVACIZUMAB
     Indication: Metastases to liver

REACTIONS (1)
  - Posterior reversible encephalopathy syndrome [Recovering/Resolving]
